FAERS Safety Report 8912039 (Version 1)
Quarter: 2012Q4

REPORT INFORMATION
  Report Type: 
  Country: US (occurrence: US)
  Receive Date: 20121116
  Receipt Date: 20121116
  Transmission Date: 20130627
  Serious: No
  Sender: FDA-Public Use
  Company Number: US-PFIZER INC-2012284621

PATIENT
  Age: 74 Year
  Sex: Male
  Weight: 112 kg

DRUGS (18)
  1. TIKOSYN [Suspect]
     Indication: ATRIAL FIBRILLATION
     Dosage: 500 ug, 2x/day
     Dates: start: 2012
  2. FUROSEMIDE [Suspect]
     Indication: FLUID RETENTION
     Dosage: 40 mg, 2x/day
     Dates: start: 2012
  3. TYLENOL [Concomitant]
     Indication: ARTHRITIS
     Dosage: 500 mg, as needed 1-2 times daily
  4. TYLENOL [Concomitant]
     Indication: PAIN
  5. ATENOLOL [Concomitant]
     Dosage: UNK
  6. POTASSIUM CHLORIDE [Concomitant]
     Dosage: UNK
  7. LIVALO [Concomitant]
     Indication: BLOOD CHOLESTEROL ABNORMAL
     Dosage: UNK
  8. WARFARIN SODIUM [Concomitant]
     Indication: CLOTTING DISORDER
     Dosage: 5mg daily (six days a week) and 7.5mg daily (on Friday)
  9. ACETYLSALICYLIC ACID [Concomitant]
     Indication: CARDIOVASCULAR EVENT PROPHYLAXIS
     Dosage: 81 mg, daily
  10. LISINOPRIL [Concomitant]
     Indication: BLOOD PRESSURE ABNORMAL
     Dosage: 10mg in morning and 20mg at night
  11. MULTIVITAMINS, PLAIN [Concomitant]
     Indication: ROUTINE HEALTH MAINTENANCE
     Dosage: UNK
  12. CALCIUM/MINERALS/VITAMIN D [Concomitant]
     Indication: ROUTINE HEALTH MAINTENANCE
     Dosage: UNK
  13. GLUCOSAMINE HYDROCHLORIDE/CHONDROITIN SULFATE [Concomitant]
     Indication: ROUTINE HEALTH MAINTENANCE
     Dosage: UNK
  14. FISH OIL [Concomitant]
     Indication: ROUTINE HEALTH MAINTENANCE
     Dosage: UNK
  15. COENZYME Q10 [Concomitant]
     Indication: ROUTINE HEALTH MAINTENANCE
     Dosage: UNK
  16. VITAMIN B COMPLEX [Concomitant]
     Indication: ROUTINE HEALTH MAINTENANCE
     Dosage: UNK
  17. VITAMIN C [Concomitant]
     Indication: ROUTINE HEALTH MAINTENANCE
     Dosage: UNK
  18. MELATONIN [Concomitant]
     Indication: ROUTINE HEALTH MAINTENANCE
     Dosage: UNK

REACTIONS (3)
  - Pain [Unknown]
  - Drug ineffective [Unknown]
  - Eye oedema [Unknown]
